FAERS Safety Report 8057107 (Version 2)
Quarter: 2012Q4

REPORT INFORMATION
  Report Type: 
  Country: US (occurrence: US)
  Receive Date: 20110727
  Receipt Date: 20120919
  Transmission Date: 20130627
  Serious: Yes (Death, Hospitalization)
  Sender: FDA-Public Use
  Company Number: US-GLAXOSMITHKLINE-A0923856A

PATIENT
  Age: 63 Year
  Sex: Female
  Weight: 68.6 kg

DRUGS (1)
  1. AVANDARYL [Suspect]
     Indication: DIABETES MELLITUS
     Route: 048
     Dates: start: 20061009, end: 20080709

REACTIONS (2)
  - Death [Fatal]
  - Cardiac failure congestive [Unknown]
